FAERS Safety Report 25427801 (Version 1)
Quarter: 2025Q2

REPORT INFORMATION
  Report Type: Spontaneous
  Country: US (occurrence: None)
  Receive Date: 20250611
  Receipt Date: 20250611
  Transmission Date: 20250716
  Serious: Yes (Hospitalization)
  Sender: FDA-CTU
  Company Number: None

PATIENT
  Age: 67 Year
  Sex: Male

DRUGS (1)
  1. CAPECITABINE [Suspect]
     Active Substance: CAPECITABINE
     Indication: Gastrointestinal neoplasm
     Route: 048
     Dates: start: 202503

REACTIONS (3)
  - Chronic obstructive pulmonary disease [None]
  - Bronchitis [None]
  - Therapy cessation [None]

NARRATIVE: CASE EVENT DATE: 20250604
